FAERS Safety Report 8605134-3 (Version None)
Quarter: 2012Q3

REPORT INFORMATION
  Report Type: 
  Country: None (occurrence: None)
  Receive Date: 20120820
  Receipt Date: 20120816
  Transmission Date: 20120928
  Serious: Yes (Death, Other)
  Sender: FDA-Public Use
  Company Number: DE-ABBOTT-12P-062-0961110-00

PATIENT
  Sex: Male

DRUGS (17)
  1. ABATACEPT [Suspect]
     Indication: POLYARTHRITIS
     Dates: start: 20071201, end: 20080601
  2. ANAKINRA [Suspect]
     Indication: POLYARTHRITIS
     Dates: start: 20080801, end: 20081001
  3. METHOTREXATE [Concomitant]
     Indication: RHEUMATOID ARTHRITIS
     Dates: start: 20031101, end: 20080901
  4. ABATACEPT [Concomitant]
     Indication: PRODUCT USED FOR UNKNOWN INDICATION
     Dates: start: 20071201, end: 20081001
  5. METHOTREXATE [Suspect]
     Indication: POLYARTHRITIS
     Dates: start: 20031101, end: 20080901
  6. METHOTREXATE [Suspect]
     Dates: start: 20090501
  7. TOCILIZUMAB [Concomitant]
     Indication: PRODUCT USED FOR UNKNOWN INDICATION
     Dates: start: 20090301, end: 20090601
  8. HUMIRA [Suspect]
     Indication: RHEUMATOID ARTHRITIS
     Route: 058
     Dates: start: 20060801, end: 20070101
  9. CERTOLIZUMAB PEGOL [Suspect]
     Indication: POLYARTHRITIS
     Dosage: CUMULATIVE DOSE: 200 MG
     Dates: start: 20110901, end: 20111001
  10. SULFASALAZINE [Concomitant]
     Indication: PRODUCT USED FOR UNKNOWN INDICATION
     Dates: start: 20090701, end: 20110301
  11. METHOTREXATE [Concomitant]
     Dates: start: 20090501
  12. CERTOLIZUMAB [Concomitant]
     Indication: PRODUCT USED FOR UNKNOWN INDICATION
     Dosage: 200 MG NOS
     Dates: start: 20110901
  13. GOLIMUMAB [Concomitant]
     Indication: PRODUCT USED FOR UNKNOWN INDICATION
     Dates: start: 20110301, end: 20110801
  14. TOCILIZUMAB [Suspect]
     Indication: POLYARTHRITIS
     Dates: start: 20090301, end: 20090601
  15. SULFASALAZINE [Suspect]
     Indication: POLYARTHRITIS
     Dates: start: 20090701, end: 20110301
  16. GOLIMUMAB [Suspect]
     Indication: POLYARTHRITIS
     Dates: start: 20110301, end: 20110801
  17. ANAKINRA [Concomitant]
     Indication: PRODUCT USED FOR UNKNOWN INDICATION
     Dates: start: 20080801, end: 20081001

REACTIONS (3)
  - METASTATIC BRONCHIAL CARCINOMA [None]
  - MALIGNANT NEOPLASM OF PLEURA [None]
  - METASTASES TO LIVER [None]
